FAERS Safety Report 25772108 (Version 1)
Quarter: 2025Q3

REPORT INFORMATION
  Report Type: Spontaneous
  Country: US (occurrence: US)
  Receive Date: 20250908
  Receipt Date: 20250908
  Transmission Date: 20251020
  Serious: No
  Sender: SANOFI AVENTIS
  Company Number: US-SA-2025SA264822

PATIENT
  Age: 49 Year
  Sex: Female

DRUGS (1)
  1. DUPIXENT [Suspect]
     Active Substance: DUPILUMAB
     Indication: Nasal polyps
     Dosage: 300 MG, QOW
     Route: 058

REACTIONS (9)
  - Swelling [Unknown]
  - Condition aggravated [Unknown]
  - Retching [Unknown]
  - Dysphonia [Unknown]
  - Muscle tightness [Unknown]
  - Pharyngeal swelling [Unknown]
  - Cough [Recovered/Resolved]
  - Generalised oedema [Unknown]
  - Oropharyngeal pain [Unknown]
